FAERS Safety Report 5139578-1 (Version None)
Quarter: 2006Q4

REPORT INFORMATION
  Report Type: 
  Country: None (occurrence: None)
  Receive Date: 20061030
  Receipt Date: 20061020
  Transmission Date: 20070319
  Serious: Yes (Other)
  Sender: FDA-Public Use
  Company Number: JP-ELI_LILLY_AND_COMPANY-JP200610004287

PATIENT
  Age: 71 Year
  Sex: Female
  Weight: 66.9 kg

DRUGS (5)
  1. RALOXIFENE HCL [Suspect]
     Indication: OSTEOPOROSIS POSTMENOPAUSAL
     Dosage: 60 MG, DAILY (1/D)
     Route: 048
     Dates: start: 20041214, end: 20051129
  2. ALFAROL [Concomitant]
     Indication: OSTEOPOROSIS POSTMENOPAUSAL
     Dosage: 1 UG, DAILY (1/D)
     Route: 048
     Dates: start: 20041214
  3. ASPARA-CA [Concomitant]
     Indication: OSTEOPOROSIS POSTMENOPAUSAL
     Dosage: 800 MG, DAILY (1/D)
     Route: 048
     Dates: start: 20031110
  4. CALCITONIN-SALMON [Concomitant]
     Indication: OSTEOPOROSIS POSTMENOPAUSAL
     Dosage: 10 U, 2/W
     Route: 030
     Dates: start: 20031110, end: 20040224
  5. CALCITONIN-SALMON [Concomitant]
     Dosage: 100 U, WEEKLY (1/W)
     Route: 030
     Dates: start: 20040302

REACTIONS (2)
  - FOREARM FRACTURE [None]
  - RIB FRACTURE [None]
